FAERS Safety Report 7549487-6 (Version None)
Quarter: 2011Q2

REPORT INFORMATION
  Report Type: 
  Country: None (occurrence: None)
  Receive Date: 20110615
  Receipt Date: 20050211
  Transmission Date: 20111010
  Serious: Yes (Death, Other)
  Sender: FDA-Public Use
  Company Number: PHFR2004GB04703

PATIENT
  Sex: Male

DRUGS (2)
  1. HALOPERIDOL [Concomitant]
     Dosage: 1.5 MG /DAY
     Route: 048
  2. CLOZAPINE [Suspect]
     Indication: SCHIZOPHRENIA
     Dosage: 300 MG, PER DAY
     Route: 048
     Dates: start: 19970612

REACTIONS (5)
  - CIRCULATORY COLLAPSE [None]
  - VOLVULUS [None]
  - ARTERIOSCLEROSIS CORONARY ARTERY [None]
  - LEFT VENTRICULAR FAILURE [None]
  - MYOCARDIAL INFARCTION [None]
